FAERS Safety Report 7085287-1 (Version None)
Quarter: 2010Q4

REPORT INFORMATION
  Report Type: 
  Country: None (occurrence: None)
  Receive Date: 20101105
  Receipt Date: 20101025
  Transmission Date: 20110411
  Serious: Yes (Hospitalization, Other)
  Sender: FDA-Public Use
  Company Number: US-PFIZER INC-2010137302

PATIENT
  Sex: Female

DRUGS (14)
  1. DILANTIN-125 [Suspect]
     Indication: GRAND MAL CONVULSION
     Dosage: UNK
     Dates: start: 19890101
  2. NEURONTIN [Suspect]
     Indication: CONVULSION
     Dosage: UNK
  3. PROTONIX [Suspect]
     Indication: PANCREATITIS
     Dosage: 40 MG, 1X/DAY
  4. PROTONIX [Suspect]
     Indication: GASTROOESOPHAGEAL REFLUX DISEASE
  5. PANTOPRAZOLE [Suspect]
     Indication: PANCREATITIS
     Dosage: 40 MG, 1X/DAY
  6. PANTOPRAZOLE [Suspect]
     Indication: GASTROOESOPHAGEAL REFLUX DISEASE
  7. PANTOPRAZOLE [Suspect]
     Dosage: 40 MG, UNK
  8. PANTOPRAZOLE [Suspect]
  9. ALBUTEROL [Concomitant]
     Indication: ASTHMA
     Dosage: AS NEEDED
     Route: 055
  10. ATENOLOL [Concomitant]
  11. ACETYLSALICYLIC ACID [Concomitant]
  12. ADVAIR DISKUS 100/50 [Concomitant]
     Indication: ASTHMA
  13. FISH OIL [Concomitant]
  14. GLUCOSAMINE [Concomitant]
     Indication: ARTHRITIS

REACTIONS (8)
  - BLOOD PRESSURE INCREASED [None]
  - CEREBRAL CYST [None]
  - CONVULSION [None]
  - DRUG INEFFECTIVE [None]
  - GASTROOESOPHAGEAL REFLUX DISEASE [None]
  - OXYGEN SATURATION DECREASED [None]
  - PANCREATITIS [None]
  - PRODUCT SUBSTITUTION ISSUE [None]
